FAERS Safety Report 5241965-8 (Version None)
Quarter: 2007Q1

REPORT INFORMATION
  Report Type: 
  Country: None (occurrence: None)
  Receive Date: 20070220
  Receipt Date: 20070213
  Transmission Date: 20070707
  Serious: Yes (Other)
  Sender: FDA-Public Use
  Company Number: BR-PFIZER INC-2007011348

PATIENT
  Age: 40 Year
  Sex: Female

DRUGS (2)
  1. CELEBRA [Suspect]
     Indication: BACK PAIN
     Route: 048
  2. DORFLEX [Concomitant]
     Route: 048

REACTIONS (2)
  - DENTAL OPERATION [None]
  - INTERVERTEBRAL DISC PROTRUSION [None]
